FAERS Safety Report 6124167-2 (Version None)
Quarter: 2009Q1

REPORT INFORMATION
  Report Type: 
  Country: None (occurrence: None)
  Receive Date: 20090319
  Receipt Date: 20090318
  Transmission Date: 20090719
  Serious: Yes (Death)
  Sender: FDA-Public Use
  Company Number: ES-JNJFOC-20090304507

PATIENT
  Age: 86 Year
  Sex: Male

DRUGS (10)
  1. TAVANIC [Suspect]
     Indication: DRUG USE FOR UNKNOWN INDICATION
     Dosage: FILM COATED TABLETS
     Route: 048
  2. LACTOBACILLUS ACIDOPHILUS [Suspect]
     Indication: DRUG USE FOR UNKNOWN INDICATION
     Route: 048
  3. TAZOBACTAM/ PIPERACILLIN [Suspect]
     Indication: PNEUMONIA
     Route: 042
  4. FLUTICASONE PROPIONATE W/ SALMETEROL [Concomitant]
     Indication: CHRONIC OBSTRUCTIVE PULMONARY DISEASE
     Route: 055
  5. SINTROM [Concomitant]
     Route: 048
  6. TIOTROPIUM BROMIDE [Concomitant]
     Indication: CHRONIC OBSTRUCTIVE PULMONARY DISEASE
     Route: 055
  7. PANTOPRAZOLE SODIUM [Concomitant]
     Route: 048
  8. METFORMIN HCL [Concomitant]
     Indication: DIABETES MELLITUS
     Route: 048
  9. LANACORDIN [Concomitant]
     Indication: ATRIAL FIBRILLATION
     Route: 048
  10. SEGURIL [Concomitant]
     Indication: CARDIAC FAILURE
     Route: 048

REACTIONS (3)
  - DEATH [None]
  - HEPATITIS [None]
  - PNEUMONIA [None]
